FAERS Safety Report 9590186 (Version 1)
Quarter: 2013Q4

REPORT INFORMATION
  Report Type: Spontaneous
  Country: US (occurrence: US)
  Receive Date: 20131003
  Receipt Date: 20131003
  Transmission Date: 20140711
  Serious: No
  Sender: FDA-Public Use
  Company Number: US-AMGEN-USASP2012075208

PATIENT
  Age: 55 Year
  Sex: Female
  Weight: 56.69 kg

DRUGS (8)
  1. ENBREL [Suspect]
     Indication: RHEUMATOID ARTHRITIS
     Dosage: 50 MG, QWK
     Route: 058
  2. CENTRUM SILVER                     /07431401/ [Concomitant]
     Dosage: UNK
     Route: 048
  3. DETROL LA [Concomitant]
     Dosage: 2 MG, UNK
     Route: 048
  4. SERTRALINE [Concomitant]
     Dosage: 25 MG, UNK
     Route: 048
  5. MELOXICAM [Concomitant]
     Dosage: 7.5 MG, UNK
     Route: 048
  6. ALENDRONATE [Concomitant]
     Dosage: 10 MG, UNK
     Route: 048
  7. CALCIUM 500+D [Concomitant]
     Dosage: 500 UNK, UNK
     Route: 048
  8. VITAMIN D3 [Concomitant]
     Dosage: UNK

REACTIONS (2)
  - Neck pain [Unknown]
  - Pain [Unknown]
